FAERS Safety Report 9886892 (Version 2)
Quarter: 2014Q1

REPORT INFORMATION
  Report Type: Spontaneous
  Country: US (occurrence: US)
  Receive Date: 20140210
  Receipt Date: 20140210
  Transmission Date: 20141002
  Serious: Yes (Other)
  Sender: FDA-Public Use
  Company Number: US-GE HEALTHCARE MEDICAL DIAGNOSTICS-OSCN-PR-0901S-0016

PATIENT
  Sex: Male

DRUGS (14)
  1. GADOLINIUM (UNSPECIFIED) [Suspect]
     Indication: PRODUCT USED FOR UNKNOWN INDICATION
     Dates: start: 20020528, end: 20020528
  2. GADOLINIUM (UNSPECIFIED) [Suspect]
     Dates: start: 20020729, end: 20020729
  3. GADOLINIUM (UNSPECIFIED) [Suspect]
     Dates: start: 200209, end: 200209
  4. GADOLINIUM (UNSPECIFIED) [Suspect]
     Dates: start: 200210, end: 200210
  5. GADOLINIUM (UNSPECIFIED) [Suspect]
     Dates: start: 20021001, end: 20021001
  6. GADOLINIUM (UNSPECIFIED) [Suspect]
     Dates: start: 20021211, end: 20021211
  7. GADOLINIUM (UNSPECIFIED) [Suspect]
     Dates: start: 200307, end: 200307
  8. GADOLINIUM (UNSPECIFIED) [Suspect]
     Dates: start: 200308, end: 200308
  9. GADOLINIUM (UNSPECIFIED) [Suspect]
     Dates: start: 20030917, end: 20030917
  10. GADOLINIUM (UNSPECIFIED) [Suspect]
     Dates: start: 20040119, end: 20040119
  11. GADOLINIUM (UNSPECIFIED) [Suspect]
     Dates: start: 20040316, end: 20040316
  12. GADOLINIUM (UNSPECIFIED) [Suspect]
     Dates: start: 20050517, end: 20050517
  13. GADOLINIUM (UNSPECIFIED) [Suspect]
     Dates: start: 20050825, end: 20050825
  14. TOPROL XL [Concomitant]
     Indication: HYPERTENSION
     Dates: start: 1995, end: 2006

REACTIONS (1)
  - Nephrogenic systemic fibrosis [Not Recovered/Not Resolved]
